FAERS Safety Report 11926179 (Version 2)
Quarter: 2016Q1

REPORT INFORMATION
  Report Type: Spontaneous
  Country: GB (occurrence: GB)
  Receive Date: 20160119
  Receipt Date: 20160202
  Transmission Date: 20160526
  Serious: Yes (Death, Congenital Anomaly, Other)
  Sender: FDA-Public Use
  Company Number: GB-AUROBINDO-AUR-APL-2016-00214

PATIENT

DRUGS (6)
  1. TRUVADA [Suspect]
     Active Substance: EMTRICITABINE\TENOFOVIR DISOPROXIL FUMARATE
     Indication: MATERNAL EXPOSURE TIMING UNSPECIFIED
     Dosage: UNK UNK, QD
     Route: 064
     Dates: start: 201407
  2. VALACICLOVIR [Suspect]
     Active Substance: VALACYCLOVIR HYDROCHLORIDE
     Indication: MATERNAL EXPOSURE TIMING UNSPECIFIED
     Dosage: 500 MG, TWO TIMES A DAY (500 MG, BID)
     Route: 064
     Dates: start: 20140918, end: 20140922
  3. CYCLIZINE [Suspect]
     Active Substance: CYCLIZINE
     Indication: MATERNAL EXPOSURE TIMING UNSPECIFIED
     Dosage: 50 MG, 3 TIMES A DAY (50 MG, TID)
     Route: 064
     Dates: start: 201409, end: 20141030
  4. NORVIR [Suspect]
     Active Substance: RITONAVIR
     Indication: MATERNAL EXPOSURE TIMING UNSPECIFIED
     Dosage: 100 MG, ONCE A DAY (100 MG, QD)
     Route: 064
     Dates: start: 201407
  5. DARUNAVIR [Suspect]
     Active Substance: DARUNAVIR
     Indication: MATERNAL EXPOSURE TIMING UNSPECIFIED
     Dosage: 800 MG, ONCE A DAY (800 MG, QD)
     Route: 064
     Dates: start: 201407
  6. MIRTAZAPINE. [Suspect]
     Active Substance: MIRTAZAPINE
     Indication: MATERNAL EXPOSURE TIMING UNSPECIFIED
     Dosage: 1 DF, ONCE A DAY (1 DF, QD)
     Route: 064
     Dates: start: 201407

REACTIONS (4)
  - Foetal exposure during pregnancy [Unknown]
  - Spina bifida [Fatal]
  - Cerebral ventricle dilatation [Fatal]
  - Skull malformation [Fatal]
